FAERS Safety Report 4467631-4 (Version None)
Quarter: 2004Q4

REPORT INFORMATION
  Report Type: 
  Country: None (occurrence: None)
  Receive Date: 20041001
  Receipt Date: 20040921
  Transmission Date: 20050328
  Serious: No
  Sender: FDA-Public Use
  Company Number: K200401453

PATIENT
  Age: 9 Year
  Sex: Female

DRUGS (1)
  1. EPIPEN JR. [Suspect]
     Indication: HYPERSENSITIVITY
     Dosage: INTRAMUSCULAR
     Route: 030

REACTIONS (3)
  - DEVICE FAILURE [None]
  - INJURY [None]
  - PHARMACEUTICAL PRODUCT COMPLAINT [None]
